FAERS Safety Report 18298457 (Version 1)
Quarter: 2020Q3

REPORT INFORMATION
  Report Type: Spontaneous
  Country: US (occurrence: US)
  Receive Date: 20200922
  Receipt Date: 20200922
  Transmission Date: 20201103
  Serious: No
  Sender: FDA-Public Use
  Company Number: US-AMARIN PHARMA, INC.-2020AMR000091

PATIENT
  Sex: Male

DRUGS (3)
  1. PROPECIA [Concomitant]
     Active Substance: FINASTERIDE
     Indication: PRODUCT USED FOR UNKNOWN INDICATION
  2. VASCEPA [Suspect]
     Active Substance: ICOSAPENT ETHYL
     Indication: PRODUCT USED FOR UNKNOWN INDICATION
     Route: 048
  3. PROPECIA [Concomitant]
     Active Substance: FINASTERIDE

REACTIONS (2)
  - Underdose [Not Recovered/Not Resolved]
  - Peripheral swelling [Not Recovered/Not Resolved]
